FAERS Safety Report 8912867 (Version 1)
Quarter: 2012Q4

REPORT INFORMATION
  Report Type: 
  Country: NL (occurrence: NL)
  Receive Date: 20121115
  Receipt Date: 20121115
  Transmission Date: 20130627
  Serious: Yes (Congenital Anomaly)
  Sender: FDA-Public Use
  Company Number: NL-ASTRAZENECA-2012SE84664

PATIENT
  Age: 0 Day
  Sex: Male
  Weight: 4.6 kg

DRUGS (3)
  1. QUETIAPINE [Suspect]
     Indication: PSYCHOTIC DISORDER
     Route: 064
     Dates: start: 20080101
  2. QUETIAPINE [Suspect]
     Indication: ANXIETY DISORDER
     Route: 064
     Dates: start: 20080101
  3. FOLIC ACID [Concomitant]

REACTIONS (1)
  - Hypospadias [Not Recovered/Not Resolved]
